FAERS Safety Report 7579324-5 (Version None)
Quarter: 2011Q2

REPORT INFORMATION
  Report Type: 
  Country: None (occurrence: None)
  Receive Date: 20110628
  Receipt Date: 20110602
  Transmission Date: 20111010
  Serious: No
  Sender: FDA-Public Use
  Company Number: US-BAYER-2011-048432

PATIENT
  Sex: Female

DRUGS (2)
  1. ALEVE (CAPLET) [Suspect]
     Route: 048
  2. MILNACIPRAN [Concomitant]
     Dosage: UNK

REACTIONS (2)
  - PRURITUS [None]
  - ABDOMINAL PAIN UPPER [None]
